FAERS Safety Report 7494535-5 (Version None)
Quarter: 2011Q2

REPORT INFORMATION
  Report Type: 
  Country: None (occurrence: None)
  Receive Date: 20110520
  Receipt Date: 20110512
  Transmission Date: 20111010
  Serious: Yes (Other)
  Sender: FDA-Public Use
  Company Number: US-JNJFOC-20110306145

PATIENT
  Age: 51 Year
  Sex: Male

DRUGS (2)
  1. STELARA [Suspect]
     Route: 058
     Dates: start: 20110310
  2. STELARA [Suspect]
     Indication: PSORIASIS
     Route: 058
     Dates: start: 20100501

REACTIONS (3)
  - ABASIA [None]
  - DEAFNESS UNILATERAL [None]
  - FEELING ABNORMAL [None]
